FAERS Safety Report 13939739 (Version 1)
Quarter: 2017Q3

REPORT INFORMATION
  Report Type: Spontaneous
  Country: US (occurrence: US)
  Receive Date: 20170906
  Receipt Date: 20170906
  Transmission Date: 20171127
  Serious: Yes (Disabling)
  Sender: FDA-Public Use
  Company Number: None

PATIENT
  Age: 37 Year
  Sex: Female
  Weight: 63 kg

DRUGS (1)
  1. LEVOFLOXICIN [Suspect]
     Active Substance: LEVOFLOXACIN
     Indication: SINUSITIS
     Dosage: ?          QUANTITY:1 TABLET(S);?DAILY ORAL
     Route: 048
     Dates: start: 20170704, end: 20170704

REACTIONS (2)
  - Arthralgia [None]
  - Tendon pain [None]

NARRATIVE: CASE EVENT DATE: 20170704
